FAERS Safety Report 7053638-X (Version None)
Quarter: 2010Q4

REPORT INFORMATION
  Report Type: 
  Country: None (occurrence: None)
  Receive Date: 20101015
  Receipt Date: 20101003
  Transmission Date: 20110411
  Serious: Yes (Other)
  Sender: FDA-Public Use
  Company Number: 2010MA003400

PATIENT
  Sex: Male

DRUGS (3)
  1. IBUPROFEN [Suspect]
     Dosage: 10 DF;X1
     Dates: start: 20101003
  2. ANTABUSE [Suspect]
  3. ALCOHOL [Concomitant]

REACTIONS (5)
  - IRRITABILITY [None]
  - SUICIDAL IDEATION [None]
  - TEARFULNESS [None]
  - TREATMENT NONCOMPLIANCE [None]
  - VOMITING [None]
